FAERS Safety Report 24287454 (Version 1)
Quarter: 2024Q3

REPORT INFORMATION
  Report Type: Spontaneous
  Country: GB (occurrence: GB)
  Receive Date: 20240905
  Receipt Date: 20240905
  Transmission Date: 20241017
  Serious: Yes (Other)
  Sender: MERCK
  Company Number: None

PATIENT
  Age: 53 Year

DRUGS (12)
  1. PEMBROLIZUMAB [Suspect]
     Active Substance: PEMBROLIZUMAB
     Dosage: LAST HAD 30-APR-2024
  2. PACLITAXEL [Suspect]
     Active Substance: PACLITAXEL
     Dosage: FOR 12 CYCLES LAST HAD 30-APR-2
  3. CARBOPLATIN [Suspect]
     Active Substance: CARBOPLATIN
     Dosage: FOR 4 CYCLES COMPLETED LAST HAD 09-APR-2024
  4. EPIRUBICIN [Suspect]
     Active Substance: EPIRUBICIN
     Dosage: LAST HAD 30-APR-2024
  5. CYCLOPHOSPHAMIDE [Suspect]
     Active Substance: CYCLOPHOSPHAMIDE
     Dosage: LAST HAD 30-APR-2024
  6. LEVOTHYROXINE SODIUM [Concomitant]
     Active Substance: LEVOTHYROXINE SODIUM
     Dosage: 2 EACH DAY AS DIRECTED EACH MORNING
  7. ONDANSETRON [Concomitant]
     Active Substance: ONDANSETRON
     Dosage: UP TO TWICE DAILY AS REQUIRED AS PER ONCOLOGIST
  8. PROMETHAZINE HYDROCHLORIDE [Concomitant]
     Active Substance: PROMETHAZINE HYDROCHLORIDE
     Dosage: AT NIGHT AS REQUIRED AS PER ONCOLOGIST
  9. BUTYLSCOPOLAMINE BROMIDE [Concomitant]
     Active Substance: BUTYLSCOPOLAMINE BROMIDE
     Dosage: TWO TO BE TAKEN
  10. DOMPERIDONE [Concomitant]
     Active Substance: DOMPERIDONE
     Dosage: UP TO THREE TIMES A DAY. MAXIMUM 3 IN 24 HOURS 84
  11. DEXAMETHASONE [Concomitant]
     Active Substance: DEXAMETHASONE
     Dosage: FOR 3 DAYS POST CHEMOTHERAPY
  12. FILGRASTIM [Concomitant]
     Active Substance: FILGRASTIM
     Dosage: 480 MILLIGRAM

REACTIONS (1)
  - Neutropenic sepsis [Unknown]
